FAERS Safety Report 15699262 (Version 4)
Quarter: 2019Q4

REPORT INFORMATION
  Report Type: Spontaneous
  Country: US (occurrence: US)
  Receive Date: 20181207
  Receipt Date: 20191129
  Transmission Date: 20200122
  Serious: Yes (Other)
  Sender: FDA-Public Use
  Company Number: PHEH2018US050731

PATIENT
  Sex: Male

DRUGS (2)
  1. COSENTYX [Suspect]
     Active Substance: SECUKINUMAB
     Dosage: 150 MG/ML, UNK
     Route: 058
     Dates: start: 20170201, end: 20170208
  2. COSENTYX [Suspect]
     Active Substance: SECUKINUMAB
     Indication: PSORIASIS
     Dosage: 300 MG/ML, UNK
     Route: 058

REACTIONS (13)
  - Back injury [Unknown]
  - Skin lesion [Unknown]
  - Psoriasis [Not Recovered/Not Resolved]
  - Pruritus [Unknown]
  - Limb injury [Unknown]
  - Wound [Unknown]
  - Lactic acidosis [Unknown]
  - Blister [Unknown]
  - Diabetic dyslipidaemia [Unknown]
  - Neurodermatitis [Unknown]
  - Rash [Unknown]
  - Perirectal abscess [Unknown]
  - Aortic arteriosclerosis [Unknown]
